FAERS Safety Report 8836720 (Version 1)
Quarter: 2012Q4

REPORT INFORMATION
  Report Type: 
  Country: US (occurrence: US)
  Receive Date: 20121012
  Receipt Date: 20121012
  Transmission Date: 20130627
  Serious: Yes (Hospitalization)
  Sender: FDA-Public Use
  Company Number: US-AMGEN-USASP2012064121

PATIENT
  Age: 52 Year
  Sex: Female

DRUGS (1)
  1. ENBREL [Suspect]
     Indication: PSORIATIC ARTHROPATHY
     Dosage: 50 mg, qwk
     Dates: start: 20100101

REACTIONS (9)
  - Wrist fracture [Recovered/Resolved]
  - Fall [Recovered/Resolved]
  - Asthma [Recovered/Resolved]
  - Osteopenia [Not Recovered/Not Resolved]
  - Injection site pain [Recovered/Resolved]
  - Injection site urticaria [Not Recovered/Not Resolved]
  - Injection site swelling [Not Recovered/Not Resolved]
  - Injection site warmth [Not Recovered/Not Resolved]
  - Injection site macule [Not Recovered/Not Resolved]
